FAERS Safety Report 4554368-6 (Version None)
Quarter: 2005Q1

REPORT INFORMATION
  Report Type: 
  Country: None (occurrence: None)
  Receive Date: 20050118
  Receipt Date: 20050107
  Transmission Date: 20050727
  Serious: Yes (Other)
  Sender: FDA-Public Use
  Company Number: PHBS2005JP00734

PATIENT
  Age: 36 Year
  Sex: Male

DRUGS (6)
  1. SANDOSTATIN [Suspect]
     Indication: PANCREATITIS CHRONIC
     Dosage: 50 UG/DAY
     Route: 042
  2. SANDOSTATIN [Suspect]
     Dosage: 1300 UG/DAY
     Route: 042
  3. REMINARON [Suspect]
     Route: 042
  4. MIRACLID [Concomitant]
     Route: 042
  5. TIENAM [Concomitant]
     Route: 042
  6. PENTCILLIN [Concomitant]
     Route: 042

REACTIONS (6)
  - DISEASE RECURRENCE [None]
  - EOSINOPHILIA [None]
  - INFECTION [None]
  - PANCREATITIS [None]
  - PLATELET COUNT DECREASED [None]
  - PYREXIA [None]
